FAERS Safety Report 15495716 (Version 1)
Quarter: 2018Q4

REPORT INFORMATION
  Report Type: Spontaneous
  Country: US (occurrence: US)
  Receive Date: 20181013
  Receipt Date: 20181013
  Transmission Date: 20190205
  Serious: Yes (Other)
  Sender: FDA-Public Use
  Company Number: PHEH2018US042795

PATIENT
  Sex: Male

DRUGS (1)
  1. KLONOPIN [Suspect]
     Active Substance: CLONAZEPAM
     Indication: PANIC DISORDER
     Dosage: 1 DF, UNK
     Route: 065
     Dates: start: 1995

REACTIONS (3)
  - Myasthenia gravis [Unknown]
  - Thymus disorder [Unknown]
  - Drug ineffective [Unknown]
